FAERS Safety Report 8748172 (Version 2)
Quarter: 2012Q4

REPORT INFORMATION
  Report Type: 
  Country: US (occurrence: US)
  Receive Date: 20120827
  Receipt Date: 20120926
  Transmission Date: 20130627
  Serious: Yes (Other)
  Sender: FDA-Public Use
  Company Number: US-MYLANLABS-2012S1016909

PATIENT
  Age: 55 Year
  Sex: Female
  Weight: 56.7 kg

DRUGS (23)
  1. ATENOLOL [Suspect]
     Indication: SYNCOPE
     Route: 048
     Dates: start: 2011
  2. ATENOLOL [Suspect]
     Indication: HEART RATE IRREGULAR
     Route: 048
     Dates: start: 2011
  3. ATENOLOL [Suspect]
     Indication: MITRAL VALVE PROLAPSE
     Route: 048
     Dates: start: 2011
  4. ATENOLOL [Suspect]
     Indication: HEART VALVE INCOMPETENCE
     Route: 048
     Dates: start: 2011
  5. ATENOLOL [Suspect]
     Indication: SYNCOPE
     Route: 048
  6. ATENOLOL [Suspect]
     Indication: HEART RATE IRREGULAR
     Route: 048
  7. ATENOLOL [Suspect]
     Indication: MITRAL VALVE PROLAPSE
     Route: 048
  8. ATENOLOL [Suspect]
     Indication: HEART VALVE INCOMPETENCE
     Route: 048
  9. ATENOLOL [Suspect]
     Indication: SYNCOPE
     Route: 048
  10. ATENOLOL [Suspect]
     Indication: HEART RATE IRREGULAR
     Route: 048
  11. ATENOLOL [Suspect]
     Indication: MITRAL VALVE PROLAPSE
     Route: 048
  12. ATENOLOL [Suspect]
     Indication: HEART VALVE INCOMPETENCE
     Route: 048
  13. ATENOLOL [Suspect]
     Indication: SYNCOPE
     Route: 048
  14. ATENOLOL [Suspect]
     Indication: HEART RATE IRREGULAR
     Route: 048
  15. ATENOLOL [Suspect]
     Indication: MITRAL VALVE PROLAPSE
     Route: 048
  16. ATENOLOL [Suspect]
     Indication: HEART VALVE INCOMPETENCE
     Route: 048
  17. LANTUS [Concomitant]
     Indication: DIABETES MELLITUS
     Route: 058
     Dates: start: 2008
  18. NOVOLOG [Concomitant]
     Indication: DIABETES MELLITUS
  19. VICODIN [Concomitant]
     Indication: PAIN
     Dates: start: 2007
  20. GABAPENTIN [Concomitant]
     Indication: NERVE INJURY
     Dates: start: 2004
  21. BETHANECHOL [Concomitant]
     Dates: start: 2012
  22. CLEARLAX [Concomitant]
     Indication: CONSTIPATION
  23. VITAMIN B [Concomitant]
     Indication: CONSTIPATION

REACTIONS (5)
  - Drug effect decreased [Not Recovered/Not Resolved]
  - Syncope [Not Recovered/Not Resolved]
  - Neck pain [Not Recovered/Not Resolved]
  - Dyspnoea [Not Recovered/Not Resolved]
  - Wrong technique in drug usage process [Not Recovered/Not Resolved]
